FAERS Safety Report 11597086 (Version 1)
Quarter: 2015Q4

REPORT INFORMATION
  Report Type: Spontaneous
  Country: US (occurrence: None)
  Receive Date: 20151005
  Receipt Date: 20151005
  Transmission Date: 20160304
  Serious: No
  Sender: FDA-Public Use
  Company Number: None

PATIENT
  Age: 20 Year
  Sex: Female
  Weight: 58.06 kg

DRUGS (3)
  1. SPIRONOLACTONE 25 MG CANDIDATE PHARMAC [Suspect]
     Active Substance: SPIRONOLACTONE
     Indication: ACNE
     Dosage: 1 PILL
     Route: 048
     Dates: start: 20150902, end: 20151003
  2. GILDESS [Concomitant]
     Active Substance: ETHINYL ESTRADIOL\NORETHINDRONE ACETATE
  3. PROBIOTIC [Concomitant]
     Active Substance: PROBIOTICS NOS

REACTIONS (1)
  - Aphthous ulcer [None]
